FAERS Safety Report 9681228 (Version 1)
Quarter: 2013Q4

REPORT INFORMATION
  Report Type: Spontaneous
  Country: US (occurrence: US)
  Receive Date: 20131111
  Receipt Date: 20131111
  Transmission Date: 20140711
  Serious: Yes (Other)
  Sender: FDA-Public Use
  Company Number: US-BAYER-2013-136027

PATIENT
  Age: 32 Year
  Sex: Female

DRUGS (7)
  1. YAZ [Suspect]
     Dosage: UNK MG, UNK
     Route: 048
  2. ORPHENADRINE [Concomitant]
     Dosage: 100 MG, UNK
     Route: 048
  3. AMITIZA [Concomitant]
     Dosage: 8 MCG
     Route: 048
  4. PHENTERMINE [Concomitant]
     Dosage: 37.5 MG, UNK
     Route: 048
  5. CEPHALEXIN [Concomitant]
     Dosage: 500 MG, UNK
     Route: 048
  6. CARISOPRODOL [Concomitant]
     Dosage: 350 MG, UNK
     Route: 048
  7. SULFAMETHOXAZOLE/TRIMETHOPRIM [Concomitant]
     Route: 048

REACTIONS (1)
  - Cholecystitis chronic [None]
